FAERS Safety Report 9427899 (Version 1)
Quarter: 2013Q3

REPORT INFORMATION
  Report Type: Spontaneous
  Country: US (occurrence: US)
  Receive Date: 20130730
  Receipt Date: 20130730
  Transmission Date: 20140515
  Serious: Yes (Other)
  Sender: FDA-Public Use
  Company Number: US-PFIZER INC-2013218964

PATIENT
  Age: 63 Year
  Sex: Female

DRUGS (3)
  1. CELEBREX [Suspect]
     Indication: OSTEOARTHRITIS
     Dosage: 200 MG, 2X/DAY
     Route: 048
     Dates: end: 2013
  2. CELEBREX [Suspect]
     Dosage: 200 MG, 1X/DAY
     Route: 048
     Dates: start: 2013
  3. DILANTIN [Concomitant]
     Dosage: UNK

REACTIONS (4)
  - Foot deformity [Unknown]
  - Bedridden [Unknown]
  - Liver disorder [Recovering/Resolving]
  - Renal disorder [Not Recovered/Not Resolved]
